FAERS Safety Report 9538433 (Version 2)
Quarter: 2013Q4

REPORT INFORMATION
  Report Type: Spontaneous
  Country: FR (occurrence: FR)
  Receive Date: 20130920
  Receipt Date: 20131021
  Transmission Date: 20140711
  Serious: Yes (Hospitalization)
  Sender: FDA-Public Use
  Company Number: FR-MERCK-1309FRA005309

PATIENT
  Age: 12 Year
  Sex: Male

DRUGS (2)
  1. NOXAFIL [Suspect]
     Indication: PROPHYLACTIC CHEMOTHERAPY
     Dosage: 5 ML, TID
     Route: 048
     Dates: start: 201305
  2. VINCRISTINE SULFATE [Suspect]
     Dosage: UNK
     Route: 042
     Dates: start: 20130705, end: 20130712

REACTIONS (1)
  - Paraesthesia [Recovered/Resolved]
